FAERS Safety Report 8152204-2 (Version None)
Quarter: 2012Q1

REPORT INFORMATION
  Report Type: 
  Country: None (occurrence: None)
  Receive Date: 20120221
  Receipt Date: 20120210
  Transmission Date: 20120608
  Serious: Yes (Other)
  Sender: FDA-Public Use
  Company Number: BR-AMGEN-BRASP2012009971

PATIENT
  Age: 31 Year
  Sex: Male
  Weight: 56.961 kg

DRUGS (3)
  1. ENBREL [Suspect]
     Indication: JUVENILE ARTHRITIS
     Dosage: 50 MG, WEEKLY
     Route: 058
     Dates: start: 20110101
  2. METHOTREXATE [Concomitant]
     Indication: ARTHRITIS
     Dosage: 8 TABLETS WEEKLY
     Dates: start: 20080101
  3. PREDNISONE [Concomitant]
     Indication: ARTHRITIS
     Dosage: 5 MG, 1X/DAY
     Dates: start: 20020101

REACTIONS (1)
  - HIP ARTHROPLASTY [None]
